FAERS Safety Report 8294272-3 (Version None)
Quarter: 2012Q2

REPORT INFORMATION
  Report Type: 
  Country: None (occurrence: None)
  Receive Date: 20120418
  Receipt Date: 20120411
  Transmission Date: 20120825
  Serious: Yes (Other)
  Sender: FDA-Public Use
  Company Number: US-UCBSA-022316

PATIENT
  Age: 31 Year
  Sex: Female

DRUGS (12)
  1. KEPPRA XR [Suspect]
     Dates: start: 20100819, end: 20101022
  2. KEPPRA XR [Suspect]
     Dates: start: 20101023, end: 20100101
  3. KEPPRA [Suspect]
     Indication: EPILEPSY
     Dates: start: 20100428, end: 20110508
  4. MULTI-VITAMINS [Concomitant]
     Indication: PREGNANCY
     Dosage: 6 PILLS ONCE DAILY
     Route: 048
  5. KEPPRA XR [Suspect]
     Indication: EPILEPSY
     Dates: start: 20100818, end: 20100818
  6. KEPPRA XR [Suspect]
     Dates: start: 20101207, end: 20100101
  7. MULTI-VITAMINS [Concomitant]
     Indication: VITAMIN SUPPLEMENTATION
     Dosage: 6 PILLS ONCE DAILY
     Route: 048
  8. KEPPRA [Suspect]
     Dates: start: 20110101
  9. KEPPRA XR [Suspect]
     Dosage: 3500 MG/DAY - 4000 MG/DAY
     Dates: start: 20101130, end: 20100101
  10. MULTI-VITAMINS [Concomitant]
     Route: 048
  11. FOLIC ACID [Concomitant]
     Indication: PREGNANCY
     Route: 048
     Dates: start: 20100801
  12. KEPPRA XR [Suspect]
     Dates: start: 20101216

REACTIONS (5)
  - BREAST FEEDING [None]
  - PREGNANCY [None]
  - ANTICONVULSANT DRUG LEVEL INCREASED [None]
  - CONVULSION [None]
  - PRE-ECLAMPSIA [None]
